FAERS Safety Report 18506208 (Version 2)
Quarter: 2020Q4

REPORT INFORMATION
  Report Type: Report from Study
  Country: US (occurrence: US)
  Receive Date: 20201116
  Receipt Date: 20201207
  Transmission Date: 20210114
  Serious: Yes (Other)
  Sender: FDA-Public Use
  Company Number: US-TAKEDA-2020TUS038964

PATIENT
  Age: 71 Year
  Sex: Male

DRUGS (2)
  1. LOMOTIL [Concomitant]
     Active Substance: ATROPINE SULFATE\DIPHENOXYLATE HYDROCHLORIDE
     Indication: DIARRHOEA
     Dosage: UNK
  2. VEDOLIZUMAB [Suspect]
     Active Substance: VEDOLIZUMAB
     Indication: CROHN^S DISEASE
     Dosage: 300 MILLIGRAM
     Route: 042
     Dates: start: 20200817

REACTIONS (14)
  - Gastrooesophageal reflux disease [Unknown]
  - Flatulence [Recovered/Resolved]
  - Fatigue [Recovered/Resolved]
  - Muscle spasms [Not Recovered/Not Resolved]
  - Arthralgia [Recovered/Resolved]
  - Diarrhoea [Recovered/Resolved]
  - Nausea [Recovered/Resolved]
  - Headache [Unknown]
  - Dehydration [Recovered/Resolved]
  - Vertigo [Unknown]
  - Back pain [Unknown]
  - Pneumonia [Recovering/Resolving]
  - Abdominal discomfort [Recovered/Resolved]
  - Haematoma [Unknown]

NARRATIVE: CASE EVENT DATE: 20200829
